FAERS Safety Report 16284324 (Version 2)
Quarter: 2019Q3

REPORT INFORMATION
  Report Type: Report from Study
  Country: None (occurrence: US)
  Receive Date: 20190508
  Receipt Date: 20190724
  Transmission Date: 20191004
  Serious: Yes (Other)
  Sender: FDA-Public Use
  Company Number: US-ABBVIE-19K-163-2712655-00

PATIENT
  Age: 61 Year
  Sex: Female
  Weight: 63.56 kg

DRUGS (4)
  1. TRINTELLIX [Concomitant]
     Active Substance: VORTIOXETINE HYDROBROMIDE
     Indication: POST-TRAUMATIC STRESS DISORDER
  2. HUMIRA [Suspect]
     Active Substance: ADALIMUMAB
     Indication: RHEUMATOID ARTHRITIS
     Route: 058
     Dates: start: 201709
  3. IBUPROFEN. [Concomitant]
     Active Substance: IBUPROFEN
     Indication: POST-TRAUMATIC STRESS DISORDER
  4. LEVOTHYROXINE. [Concomitant]
     Active Substance: LEVOTHYROXINE
     Indication: THYROID DISORDER

REACTIONS (8)
  - Pustular psoriasis [Unknown]
  - Rotator cuff syndrome [Recovered/Resolved]
  - Arthralgia [Not Recovered/Not Resolved]
  - Pain in extremity [Recovering/Resolving]
  - Injection site pruritus [Recovering/Resolving]
  - Cartilage atrophy [Unknown]
  - Osteoarthritis [Unknown]
  - Arthritis [Unknown]

NARRATIVE: CASE EVENT DATE: 201802
